FAERS Safety Report 25421520 (Version 3)
Quarter: 2025Q3

REPORT INFORMATION
  Report Type: Report from Study
  Country: US (occurrence: US)
  Receive Date: 20250611
  Receipt Date: 20250810
  Transmission Date: 20251021
  Serious: Yes (Other)
  Sender: ALEXION PHARMACEUTICALS
  Company Number: 202503USA011778US

PATIENT
  Age: 50 Year
  Sex: Female
  Weight: 55.3 kg

DRUGS (3)
  1. OLAPARIB [Suspect]
     Active Substance: OLAPARIB
     Indication: Breast cancer
     Dosage: 30 MILLIGRAM, BID
     Dates: start: 20250224
  2. FASLODEX [Suspect]
     Active Substance: FULVESTRANT
     Route: 065
  3. FASLODEX [Suspect]
     Active Substance: FULVESTRANT

REACTIONS (11)
  - Ascites [Unknown]
  - Neoplasm progression [Unknown]
  - Diarrhoea [Unknown]
  - Constipation [Unknown]
  - Liver disorder [Unknown]
  - Blood albumin decreased [Unknown]
  - Appetite disorder [Unknown]
  - Abdominal pain [Unknown]
  - Migraine [Unknown]
  - Osteopenia [Unknown]
  - Oropharyngeal neoplasm benign [Unknown]
